FAERS Safety Report 20223759 (Version 2)
Quarter: 2022Q1

REPORT INFORMATION
  Report Type: Spontaneous
  Country: RU (occurrence: RU)
  Receive Date: 20211223
  Receipt Date: 20220128
  Transmission Date: 20220423
  Serious: Yes (Hospitalization)
  Sender: FDA-Public Use
  Company Number: RU-LUNDBECK-DKLU3042487

PATIENT
  Age: 63 Year
  Sex: Female
  Weight: 65 kg

DRUGS (4)
  1. BRINTELLIX [Suspect]
     Active Substance: VORTIOXETINE HYDROBROMIDE
     Indication: Depressed mood
     Dosage: 10 MILLIGRAM
     Route: 065
     Dates: start: 202102
  2. BRINTELLIX [Suspect]
     Active Substance: VORTIOXETINE HYDROBROMIDE
     Indication: Major depression
  3. INVEGA [Concomitant]
     Active Substance: PALIPERIDONE
     Indication: Sleep disorder
     Dosage: UNK
     Route: 065
  4. SOMNOL [Concomitant]
     Active Substance: APOMORPHINE HYDROCHLORIDE\HEXOBARBITAL\NIACIN\PHENOBARBITAL\SCOPOLAMINE HYDROBROMIDE
     Indication: Sleep disorder
     Dosage: UNK
     Route: 065

REACTIONS (3)
  - Withdrawal syndrome [Recovered/Resolved with Sequelae]
  - Anxiety [Unknown]
  - Insomnia [Unknown]

NARRATIVE: CASE EVENT DATE: 20211101
